FAERS Safety Report 21663445 (Version 1)
Quarter: 2022Q4

REPORT INFORMATION
  Report Type: Spontaneous
  Country: US (occurrence: None)
  Receive Date: 20221129
  Receipt Date: 20221129
  Transmission Date: 20230113
  Serious: Yes (Death)
  Sender: FDA-Public Use
  Company Number: None

PATIENT
  Age: 40 Year
  Sex: Female
  Weight: 42.75 kg

DRUGS (2)
  1. METRONIDAZOLE [Suspect]
     Active Substance: METRONIDAZOLE
     Indication: Bacterial vaginosis
     Dosage: OTHER QUANTITY : 1 INJECTION(S);?FREQUENCY : TWICE A DAY;?
     Route: 067
     Dates: start: 20221013, end: 20221020
  2. IRON [Concomitant]
     Active Substance: IRON

REACTIONS (5)
  - Exposure during pregnancy [None]
  - Vaginal haemorrhage [None]
  - Foetal death [None]
  - Drug ineffective [None]
  - Contraindicated product prescribed [None]

NARRATIVE: CASE EVENT DATE: 20221013
